FAERS Safety Report 19078438 (Version 3)
Quarter: 2021Q2

REPORT INFORMATION
  Report Type: Report from Study
  Country: US (occurrence: US)
  Receive Date: 20210331
  Receipt Date: 20210424
  Transmission Date: 20210717
  Serious: Yes (Other)
  Sender: FDA-Public Use
  Company Number: NVSC2021US069800

PATIENT
  Sex: Female

DRUGS (3)
  1. ZORTRESS [Suspect]
     Active Substance: EVEROLIMUS
     Indication: TRANSPLANT
     Dosage: UNK
     Route: 065
  2. MYCOPHENOLIC ACID. [Suspect]
     Active Substance: MYCOPHENOLIC ACID
     Indication: PRODUCT USED FOR UNKNOWN INDICATION
     Dosage: UNK
     Route: 065
  3. ZORTRESS [Suspect]
     Active Substance: EVEROLIMUS
     Dosage: 0.75 MG, BID
     Route: 048

REACTIONS (2)
  - Ill-defined disorder [Unknown]
  - Blood pressure increased [Unknown]
